FAERS Safety Report 24014955 (Version 2)
Quarter: 2025Q1

REPORT INFORMATION
  Report Type: Other
  Country: CA (occurrence: CA)
  Receive Date: 20240626
  Receipt Date: 20250123
  Transmission Date: 20250408
  Serious: Yes (Other)
  Sender: BIOCON
  Company Number: CA-BIOCON BIOLOGICS LIMITED-BBL2024004573

PATIENT

DRUGS (1)
  1. OGIVRI [Suspect]
     Active Substance: TRASTUZUMAB-DKST
     Indication: Metastatic gastric cancer
     Dosage: 216 MILLIGRAM, Q2W (POWDER FOR SOLUTION INTRAVENOUS)
     Route: 042

REACTIONS (4)
  - Full blood count abnormal [Unknown]
  - Malaise [Unknown]
  - Neutropenia [Unknown]
  - Inappropriate schedule of product administration [Unknown]
